FAERS Safety Report 16506176 (Version 1)
Quarter: 2019Q3

REPORT INFORMATION
  Report Type: Spontaneous
  Country: US (occurrence: US)
  Receive Date: 20190701
  Receipt Date: 20190701
  Transmission Date: 20191004
  Serious: Yes (Other)
  Sender: FDA-Public Use
  Company Number: US-MALLINCKRODT-T201904602

PATIENT
  Sex: Female
  Weight: 81 kg

DRUGS (1)
  1. H.P. ACTHAR [Suspect]
     Active Substance: CORTICOTROPIN
     Indication: MULTIPLE SCLEROSIS
     Dosage: 80 UNITS (1 ML), DAILY FOR 5 DAYS
     Route: 058
     Dates: start: 201506

REACTIONS (1)
  - Multiple sclerosis [Unknown]
